FAERS Safety Report 6639877-8 (Version None)
Quarter: 2010Q1

REPORT INFORMATION
  Report Type: 
  Country: None (occurrence: None)
  Receive Date: 20100318
  Receipt Date: 20100308
  Transmission Date: 20100710
  Serious: Yes (Hospitalization)
  Sender: FDA-Public Use
  Company Number: CA-JNJFOC-20100302835

PATIENT
  Sex: Female
  Weight: 83 kg

DRUGS (3)
  1. REMICADE [Suspect]
     Indication: COLITIS ULCERATIVE
     Route: 042
  2. METHOTREXATE [Concomitant]
     Route: 048
  3. SOLU-MEDROL [Concomitant]
     Route: 042

REACTIONS (1)
  - COLECTOMY [None]
